FAERS Safety Report 7160860-0 (Version None)
Quarter: 2010Q4

REPORT INFORMATION
  Report Type: 
  Country: None (occurrence: None)
  Receive Date: 20101214
  Receipt Date: 20101201
  Transmission Date: 20110411
  Serious: Yes (Other)
  Sender: FDA-Public Use
  Company Number: GB-MYLANLABS-2010S1022207

PATIENT
  Age: 48 Year
  Sex: Female
  Weight: 87 kg

DRUGS (7)
  1. LAMOTRIGINE [Suspect]
     Indication: ILL-DEFINED DISORDER
  2. LOFEPRAMINE [Suspect]
     Indication: ILL-DEFINED DISORDER
  3. RISPERIDONE [Suspect]
     Indication: ILL-DEFINED DISORDER
  4. TOPIRAMATE [Suspect]
     Indication: DRUG THERAPY
     Route: 048
  5. ANTIDEPRESSANTS [Suspect]
     Indication: ILL-DEFINED DISORDER
  6. CARDIOVASCULAR SYSTEM DRUGS [Suspect]
     Indication: ILL-DEFINED DISORDER
  7. OTHER PSYCHOSTIMULANTS AND NOOTROPICS [Suspect]
     Indication: ILL-DEFINED DISORDER

REACTIONS (3)
  - PARAESTHESIA [None]
  - PARKINSONISM [None]
  - WEIGHT DECREASED [None]
